FAERS Safety Report 19793321 (Version 2)
Quarter: 2021Q3

REPORT INFORMATION
  Report Type: Report from Study
  Country: SE (occurrence: SE)
  Receive Date: 20210906
  Receipt Date: 20210923
  Transmission Date: 20211014
  Serious: Yes (Other)
  Sender: FDA-Public Use
  Company Number: NVSC2021SE196788

PATIENT
  Age: 80 Year
  Sex: Female

DRUGS (4)
  1. HYLO?COMOD [Concomitant]
     Active Substance: HYALURONATE SODIUM
     Indication: DRY EYE
     Dosage: UNK
     Route: 065
     Dates: start: 20200115
  2. VITA POS [Concomitant]
     Active Substance: VITAMIN A PALMITATE
     Indication: DRY EYE
     Dosage: UNK
     Route: 065
     Dates: start: 20200115
  3. BROLUCIZUMAB. [Suspect]
     Active Substance: BROLUCIZUMAB
     Indication: NEOVASCULAR AGE-RELATED MACULAR DEGENERATION
     Dosage: UNK
     Route: 065
     Dates: start: 20210503, end: 20210623
  4. FELODIPIN [Concomitant]
     Active Substance: FELODIPINE
     Indication: HYPERTENSION
     Dosage: UNK
     Route: 065
     Dates: start: 20210327

REACTIONS (2)
  - Retinal vasculitis [Unknown]
  - Retinal artery occlusion [Unknown]

NARRATIVE: CASE EVENT DATE: 20210818
